FAERS Safety Report 25881634 (Version 1)
Quarter: 2025Q4

REPORT INFORMATION
  Report Type: Spontaneous
  Country: US (occurrence: US)
  Receive Date: 20251005
  Receipt Date: 20251005
  Transmission Date: 20260119
  Serious: No
  Sender: SANOFI AVENTIS
  Company Number: US-SA-2025SA294922

PATIENT
  Sex: Female
  Weight: 65.91 kg

DRUGS (22)
  1. DUPIXENT [Suspect]
     Active Substance: DUPILUMAB
     Dosage: 300 MG, QOW
     Route: 058
  2. VOLTAREN ARTHRITIS PAIN [Concomitant]
     Active Substance: DICLOFENAC SODIUM
     Dosage: UNK
  3. VALACYCLOVIR [Concomitant]
     Active Substance: VALACYCLOVIR HYDROCHLORIDE
     Dosage: UNK
  4. PRAMIPEXOLE DIHYDROCHLORIDE [Concomitant]
     Active Substance: PRAMIPEXOLE DIHYDROCHLORIDE
  5. DEXTROSE [Concomitant]
     Active Substance: DEXTROSE MONOHYDRATE
  6. OMEPRAZOLE [Concomitant]
     Active Substance: OMEPRAZOLE
  7. METRONIDAZOLE [Concomitant]
     Active Substance: METRONIDAZOLE
  8. METHOCARBAMOL [Concomitant]
     Active Substance: METHOCARBAMOL
  9. MAGNESIUM [Concomitant]
     Active Substance: MAGNESIUM
  10. LOVASTATIN [Concomitant]
     Active Substance: LOVASTATIN
  11. LISINOPRIL [Concomitant]
     Active Substance: LISINOPRIL
  12. LIOTHYRONINE SODIUM [Concomitant]
     Active Substance: LIOTHYRONINE SODIUM
  13. LEVOTHYROXINE SODIUM [Concomitant]
     Active Substance: LEVOTHYROXINE SODIUM
  14. GABAPENTIN [Concomitant]
     Active Substance: GABAPENTIN
  15. FUROSEMIDE [Concomitant]
     Active Substance: FUROSEMIDE
  16. FAMOTIDINE [Concomitant]
     Active Substance: FAMOTIDINE
  17. DEXTRAN SULFATE SODIUM [Concomitant]
     Active Substance: DEXTRAN SULFATE SODIUM
  18. B12 [Concomitant]
  19. BENEFIBER [Concomitant]
     Active Substance: STARCH, WHEAT
  20. BASAGLAR KWIKPEN [Concomitant]
     Active Substance: INSULIN GLARGINE
  21. ASPIRIN [Concomitant]
     Active Substance: ASPIRIN
  22. ACETAMINOPHEN AND CODEINE [Concomitant]
     Active Substance: ACETAMINOPHEN\CODEINE PHOSPHATE

REACTIONS (2)
  - Accidental exposure to product [Unknown]
  - Exposure via skin contact [Unknown]
